FAERS Safety Report 25508144 (Version 2)
Quarter: 2025Q3

REPORT INFORMATION
  Report Type: Report from Study
  Country: US (occurrence: US)
  Receive Date: 20250703
  Receipt Date: 20250730
  Transmission Date: 20251020
  Serious: No
  Sender: SANDOZ
  Company Number: US-SANDOZ-SDZ2025US046049

PATIENT
  Age: 13 Year
  Sex: Male

DRUGS (4)
  1. OMNITROPE [Suspect]
     Active Substance: SOMATROPIN
     Indication: Product used for unknown indication
     Dosage: 1.8 MG, QD (ONCE DAILY)
     Route: 058
     Dates: start: 20250612
  2. OMNITROPE [Suspect]
     Active Substance: SOMATROPIN
     Indication: Product used for unknown indication
     Dosage: 1.8 MG, QD (ONCE DAILY)
     Route: 058
     Dates: start: 20250612
  3. OMNITROPE [Suspect]
     Active Substance: SOMATROPIN
     Dosage: 1.8 MG, QD (ONCE DAILY)
     Route: 058
  4. OMNITROPE [Suspect]
     Active Substance: SOMATROPIN
     Dosage: 1.8 MG, QD (ONCE DAILY)
     Route: 058

REACTIONS (4)
  - Incorrect dose administered by device [Unknown]
  - Device difficult to use [Unknown]
  - Drug dose omission by device [Unknown]
  - Device leakage [Unknown]

NARRATIVE: CASE EVENT DATE: 20250628
